FAERS Safety Report 9841653 (Version 5)
Quarter: 2014Q2

REPORT INFORMATION
  Report Type: Report from Study
  Country: KE (occurrence: KE)
  Receive Date: 20140124
  Receipt Date: 20140505
  Transmission Date: 20141212
  Serious: Yes (Death, Hospitalization, Other)
  Sender: FDA-Public Use
  Company Number: KE-GILEAD-2014-0092331

PATIENT
  Age: 36 Year
  Sex: Female

DRUGS (15)
  1. EMTRICITABINE/TENOFOVIR DISOPROXIL FUMARATE [Suspect]
     Indication: HIV INFECTION
     Dosage: UNK
     Route: 065
     Dates: start: 20130807, end: 20140314
  2. EFAVIRENZ [Suspect]
     Indication: HIV INFECTION
     Dosage: UNK
     Route: 065
     Dates: start: 20130807, end: 20140314
  3. ABACAVIR [Suspect]
     Indication: PRODUCT USED FOR UNKNOWN INDICATION
     Dosage: UNK
     Route: 065
     Dates: start: 20140314, end: 20140327
  4. LAMIVUDINE [Suspect]
     Indication: PRODUCT USED FOR UNKNOWN INDICATION
     Dosage: UNK
     Route: 065
     Dates: start: 20140314, end: 20140327
  5. RITONAVIR [Suspect]
     Indication: PRODUCT USED FOR UNKNOWN INDICATION
     Dosage: UNK
     Route: 065
     Dates: start: 20140314, end: 20140327
  6. LOPINAVIR [Suspect]
     Indication: PRODUCT USED FOR UNKNOWN INDICATION
     Dosage: UNK
     Route: 065
     Dates: start: 20140314, end: 20140327
  7. ISONIAZID [Suspect]
     Indication: PRODUCT USED FOR UNKNOWN INDICATION
     Dosage: UNK
     Route: 065
     Dates: start: 20140115, end: 20140327
  8. ISONIAZID [Suspect]
     Dosage: UNK
     Route: 065
     Dates: start: 20130807, end: 20131031
  9. RIFAMPICIN [Suspect]
     Indication: PRODUCT USED FOR UNKNOWN INDICATION
     Dosage: UNK
     Route: 065
     Dates: start: 20140115, end: 20140314
  10. PYRAZINAMIDE [Suspect]
     Indication: PRODUCT USED FOR UNKNOWN INDICATION
     Dosage: UNK
     Route: 065
     Dates: start: 20140115, end: 20140327
  11. ETHAMBUTOL [Suspect]
     Indication: PRODUCT USED FOR UNKNOWN INDICATION
     Dosage: UNK
     Route: 065
     Dates: start: 20140115, end: 20140327
  12. RIFABUTIN [Suspect]
     Indication: PRODUCT USED FOR UNKNOWN INDICATION
     Dosage: UNK
     Route: 065
     Dates: start: 20140314, end: 20140327
  13. SEPTRIN [Concomitant]
     Indication: PRODUCT USED FOR UNKNOWN INDICATION
     Dosage: UNK
     Route: 065
     Dates: start: 20130807, end: 20140327
  14. PYRIDOXIN [Concomitant]
     Indication: PRODUCT USED FOR UNKNOWN INDICATION
     Dosage: UNK
     Dates: start: 20140115, end: 20140327
  15. PYRIDOXIN [Concomitant]
     Dosage: UNK
     Dates: start: 20130807, end: 20131031

REACTIONS (4)
  - Death [Fatal]
  - Mycobacterium avium complex infection [Unknown]
  - Lymph node tuberculosis [Unknown]
  - Sepsis [Unknown]
